FAERS Safety Report 20456529 (Version 2)
Quarter: 2022Q1

REPORT INFORMATION
  Report Type: Spontaneous
  Country: US (occurrence: US)
  Receive Date: 20220210
  Receipt Date: 20220221
  Transmission Date: 20220424
  Serious: Yes (Hospitalization, Other)
  Sender: FDA-Public Use
  Company Number: US-ALLERGAN-2204874US

PATIENT
  Sex: Female

DRUGS (6)
  1. RESTASIS [Suspect]
     Active Substance: CYCLOSPORINE
     Indication: Sjogren^s syndrome
     Dosage: UNK UNK, BID
     Route: 047
     Dates: start: 20201026, end: 20201110
  2. LORAZEPAM [Concomitant]
     Active Substance: LORAZEPAM
     Indication: Ataxia
     Dosage: 0.5 MG, PRN
  3. LORAZEPAM [Concomitant]
     Active Substance: LORAZEPAM
     Indication: Stiff person syndrome
  4. LEVOTHYROXINE [Concomitant]
     Active Substance: LEVOTHYROXINE
     Indication: Hypothyroidism
  5. VITAMIN B12 [Concomitant]
     Active Substance: CYANOCOBALAMIN
     Indication: Vitamin B12 deficiency
  6. EFFEXOR [Concomitant]
     Active Substance: VENLAFAXINE HYDROCHLORIDE
     Indication: Anxiety
     Dosage: 75 MG

REACTIONS (4)
  - Seizure [Recovered/Resolved]
  - Hip fracture [Recovered/Resolved]
  - Joint dislocation [Recovered/Resolved]
  - Injury [Recovered/Resolved]

NARRATIVE: CASE EVENT DATE: 20201104
